FAERS Safety Report 8453699-7 (Version None)
Quarter: 2012Q2

REPORT INFORMATION
  Report Type: 
  Country: None (occurrence: None)
  Receive Date: 20120620
  Receipt Date: 20120607
  Transmission Date: 20120825
  Serious: Yes (Hospitalization)
  Sender: FDA-Public Use
  Company Number: US-ACTELION-A-US2012-67020

PATIENT

DRUGS (7)
  1. LOVENOX [Concomitant]
  2. TRACLEER [Suspect]
     Indication: PULMONARY ARTERIAL HYPERTENSION
     Dosage: UNK
     Route: 048
     Dates: start: 20020923
  3. OXYGEN [Concomitant]
  4. ARAVA [Concomitant]
  5. ASPIRIN [Concomitant]
  6. COUMADIN [Concomitant]
  7. PROCRIT [Concomitant]

REACTIONS (3)
  - DEHYDRATION [None]
  - GASTROINTESTINAL OBSTRUCTION [None]
  - DIVERTICULITIS [None]
